FAERS Safety Report 6596899-3 (Version None)
Quarter: 2010Q1

REPORT INFORMATION
  Report Type: 
  Country: None (occurrence: None)
  Receive Date: 20100223
  Receipt Date: 20100218
  Transmission Date: 20100710
  Serious: Yes (Other)
  Sender: FDA-Public Use
  Company Number: US-ROXANE LABORATORIES, INC.-2010-RO-00179RO

PATIENT
  Age: 45 Year
  Sex: Female

DRUGS (5)
  1. PREDNISONE [Suspect]
     Indication: SCLERITIS
  2. METHOTREXATE [Suspect]
     Indication: SCLERITIS
  3. TRIAMCINOLONE ACETONIDE [Suspect]
     Indication: SCLERITIS
     Dosage: 1 ML
  4. ADALIMUMAB [Suspect]
     Indication: SCLERITIS
  5. INFLIXIMAB [Concomitant]
     Indication: SCLERITIS

REACTIONS (1)
  - SCLERITIS [None]
